FAERS Safety Report 17595342 (Version 2)
Quarter: 2020Q2

REPORT INFORMATION
  Report Type: Report from Study
  Country: CA (occurrence: CA)
  Receive Date: 20200329
  Receipt Date: 20200601
  Transmission Date: 20200713
  Serious: Yes (Other)
  Sender: FDA-Public Use
  Company Number: CA-BIOGEN-2020BI00851076

PATIENT
  Age: 24 Year
  Sex: Female

DRUGS (1)
  1. TYSABRI [Suspect]
     Active Substance: NATALIZUMAB
     Indication: MULTIPLE SCLEROSIS
     Dosage: INFUSED OVER ONE HOUR
     Route: 042
     Dates: start: 20190104

REACTIONS (7)
  - Visual impairment [Not Recovered/Not Resolved]
  - Blindness transient [Unknown]
  - Pain in extremity [Unknown]
  - Posture abnormal [Unknown]
  - Dyskinesia [Unknown]
  - Dizziness [Unknown]
  - Paraesthesia [Unknown]

NARRATIVE: CASE EVENT DATE: 20200218
